FAERS Safety Report 6293543-X (Version None)
Quarter: 2009Q3

REPORT INFORMATION
  Report Type: 
  Country: None (occurrence: None)
  Receive Date: 20090803
  Receipt Date: 20090729
  Transmission Date: 20100115
  Serious: Yes (Other)
  Sender: FDA-Public Use
  Company Number: CH-BRISTOL-MYERS SQUIBB COMPANY-14695951

PATIENT
  Age: 58 Year
  Sex: Female

DRUGS (1)
  1. ORENCIA [Suspect]
     Indication: RHEUMATOID ARTHRITIS
     Dosage: 2 PERFUSIONS IN MARCH AND APRIL
     Route: 041
     Dates: start: 20090301, end: 20090401

REACTIONS (8)
  - BRONCHIAL OBSTRUCTION [None]
  - CHEST DISCOMFORT [None]
  - CHILLS [None]
  - CONJUNCTIVITIS [None]
  - DYSPNOEA [None]
  - HYPERTENSION [None]
  - OLIGURIA [None]
  - WHEEZING [None]
